FAERS Safety Report 24361588 (Version 1)
Quarter: 2024Q3

REPORT INFORMATION
  Report Type: Other
  Country: US (occurrence: US)
  Receive Date: 20240925
  Receipt Date: 20240925
  Transmission Date: 20241016
  Serious: Yes (Other)
  Sender: AVONDALE PHARMACEUTICALS
  Company Number: US-Avondale Pharmaceuticals, LLC-2162028

PATIENT
  Sex: Male

DRUGS (1)
  1. NIACOR [Suspect]
     Active Substance: NIACIN
     Indication: Product used for unknown indication

REACTIONS (1)
  - Hepatocellular injury [Recovered/Resolved]
